FAERS Safety Report 5363175-6 (Version None)
Quarter: 2007Q2

REPORT INFORMATION
  Report Type: 
  Country: None (occurrence: None)
  Receive Date: 20070620
  Receipt Date: 20070612
  Transmission Date: 20071010
  Serious: Yes (Other)
  Sender: FDA-Public Use
  Company Number: PHEH2007US06550

PATIENT
  Age: 57 Year
  Sex: Female

DRUGS (4)
  1. ZELNORM [Suspect]
     Dosage: 6 MG, BID
     Dates: start: 20060522
  2. PREMARIN [Concomitant]
  3. NEXIUM [Concomitant]
  4. PROPRANOLOL [Concomitant]

REACTIONS (1)
  - CEREBROVASCULAR ACCIDENT [None]
